FAERS Safety Report 7717335-7 (Version None)
Quarter: 2011Q3

REPORT INFORMATION
  Report Type: 
  Country: None (occurrence: None)
  Receive Date: 20110822
  Receipt Date: 20110629
  Transmission Date: 20111222
  Serious: Yes (Hospitalization)
  Sender: FDA-Public Use
  Company Number: SP03772

PATIENT
  Age: 18 Year
  Sex: Female

DRUGS (1)
  1. APRISO [Suspect]
     Indication: COLITIS ULCERATIVE
     Dosage: ORAL
     Route: 048
     Dates: start: 20110501, end: 20110628

REACTIONS (4)
  - HEADACHE [None]
  - GASTROINTESTINAL PAIN [None]
  - DRUG INEFFECTIVE [None]
  - DIARRHOEA [None]
